FAERS Safety Report 4770807-X (Version None)
Quarter: 2005Q3

REPORT INFORMATION
  Report Type: 
  Country: None (occurrence: None)
  Receive Date: 20050914
  Receipt Date: 20040921
  Transmission Date: 20060218
  Serious: Yes (Death)
  Sender: FDA-Public Use
  Company Number: 2004235337HN

PATIENT
  Age: 26 Year
  Sex: Male

DRUGS (1)
  1. ZYVOX [Suspect]
     Indication: URINARY TRACT INFECTION STAPHYLOCOCCAL
     Dates: start: 20040101

REACTIONS (1)
  - MESENTERIC OCCLUSION [None]
